FAERS Safety Report 18216495 (Version 2)
Quarter: 2020Q3

REPORT INFORMATION
  Report Type: Spontaneous
  Country: US (occurrence: US)
  Receive Date: 20200901
  Receipt Date: 20200929
  Transmission Date: 20201103
  Serious: Yes (Hospitalization)
  Sender: FDA-Public Use
  Company Number: US-ROCHE-2667774

PATIENT
  Age: 79 Year
  Sex: Female

DRUGS (5)
  1. MEMANTINE HCL [Concomitant]
     Active Substance: MEMANTINE
  2. ERIVEDGE [Suspect]
     Active Substance: VISMODEGIB
     Indication: BASAL CELL CARCINOMA
     Dosage: 1 CAPSULE
     Route: 048
     Dates: start: 20200730
  3. LISINOPRIL. [Concomitant]
     Active Substance: LISINOPRIL
  4. DONEPEZIL HCL [Concomitant]
     Active Substance: DONEPEZIL HYDROCHLORIDE
  5. VENLAFAXINE HCL [Concomitant]
     Active Substance: VENLAFAXINE HYDROCHLORIDE
     Dosage: ER: EXTENDED RELEASE

REACTIONS (2)
  - Myocardial infarction [Not Recovered/Not Resolved]
  - Nausea [Recovered/Resolved]

NARRATIVE: CASE EVENT DATE: 20200819
